FAERS Safety Report 21187125 (Version 1)
Quarter: 2022Q3

REPORT INFORMATION
  Report Type: Spontaneous
  Country: US (occurrence: None)
  Receive Date: 20220808
  Receipt Date: 20220808
  Transmission Date: 20221027
  Serious: No
  Sender: FDA-Public Use
  Company Number: None

PATIENT
  Age: 40 Year
  Sex: Female
  Weight: 81.9 kg

DRUGS (5)
  1. PAXLOVID [Suspect]
     Active Substance: NIRMATRELVIR\RITONAVIR
     Indication: COVID-19
     Dosage: FREQUENCY : TWICE A DAY;?
     Route: 048
     Dates: start: 20220807
  2. LEVOTHYROXINE [Concomitant]
     Active Substance: LEVOTHYROXINE
     Dates: start: 20120101
  3. BUPROPION [Concomitant]
     Active Substance: BUPROPION
     Dates: start: 20220301
  4. TYLENOL [Concomitant]
     Active Substance: ACETAMINOPHEN
     Dates: start: 20220805
  5. ADVIL [Concomitant]
     Active Substance: IBUPROFEN
     Dates: start: 20220805

REACTIONS (12)
  - Dizziness [None]
  - Pain [None]
  - Dizziness [None]
  - Hyperhidrosis [None]
  - Hypopnoea [None]
  - Heart rate increased [None]
  - Disorientation [None]
  - Dry mouth [None]
  - Headache [None]
  - Influenza like illness [None]
  - Feeling drunk [None]
  - Tongue disorder [None]

NARRATIVE: CASE EVENT DATE: 20220807
